FAERS Safety Report 6276442-9 (Version None)
Quarter: 2009Q3

REPORT INFORMATION
  Report Type: 
  Country: None (occurrence: None)
  Receive Date: 20090722
  Receipt Date: 20090717
  Transmission Date: 20100115
  Serious: Yes (Hospitalization)
  Sender: FDA-Public Use
  Company Number: US-MYLANLABS-2009S1010645

PATIENT
  Age: 77 Year
  Sex: Male
  Weight: 70.31 kg

DRUGS (15)
  1. PERFOROMIST [Suspect]
     Indication: CHRONIC OBSTRUCTIVE PULMONARY DISEASE
     Route: 055
     Dates: start: 20081101, end: 20090616
  2. PULMICORT-100 [Suspect]
     Indication: CHRONIC OBSTRUCTIVE PULMONARY DISEASE
     Route: 055
     Dates: start: 20081101
  3. NITROGLYCERIN [Concomitant]
  4. OXYCODONE HCL AND ACETAMINOPHEN [Suspect]
  5. FENTANYL-100 [Concomitant]
     Route: 062
  6. VITAMIN D [Concomitant]
  7. MULTI-VITAMIN [Concomitant]
  8. ALBUTEROL [Concomitant]
  9. PREDNISONE TAB [Concomitant]
  10. FLOMAX /01280302/ [Concomitant]
  11. CLONAZEPAM [Concomitant]
  12. OMEPRAZOLE [Concomitant]
  13. CALCIUM [Concomitant]
  14. ASPIRIN [Suspect]
  15. IPRATROPIUM BROMIDE [Concomitant]
     Route: 055

REACTIONS (7)
  - ABDOMINAL PAIN UPPER [None]
  - BLOOD PRESSURE INCREASED [None]
  - COUGH [None]
  - DRUG ADMINISTRATION ERROR [None]
  - DYSPNOEA [None]
  - HEART RATE INCREASED [None]
  - PNEUMONIA [None]
